FAERS Safety Report 8616369-8 (Version None)
Quarter: 2012Q3

REPORT INFORMATION
  Report Type: 
  Country: None (occurrence: None)
  Receive Date: 20120823
  Receipt Date: 20120815
  Transmission Date: 20120928
  Serious: Yes (Hospitalization)
  Sender: FDA-Public Use
  Company Number: US-ABBOTT-12P-163-0969618-00

PATIENT
  Sex: Female
  Weight: 56.75 kg

DRUGS (2)
  1. HUMIRA [Suspect]
     Route: 058
     Dates: start: 20120801
  2. HUMIRA [Suspect]
     Indication: RHEUMATOID ARTHRITIS
     Route: 058
     Dates: start: 20020101, end: 20120601

REACTIONS (6)
  - WHITE BLOOD CELL COUNT DECREASED [None]
  - PYREXIA [None]
  - HOSPITALISATION [None]
  - LOCALISED INFECTION [None]
  - MALAISE [None]
  - CHILLS [None]
